FAERS Safety Report 23355018 (Version 1)
Quarter: 2024Q1

REPORT INFORMATION
  Report Type: Report from Study
  Country: CO (occurrence: CO)
  Receive Date: 20240101
  Receipt Date: 20240101
  Transmission Date: 20240409
  Serious: Yes (Death, Hospitalization, Other)
  Sender: FDA-Public Use
  Company Number: CO-ABBVIE-5565988

PATIENT
  Age: 47 Year
  Sex: Female
  Weight: 50 kg

DRUGS (1)
  1. ZEMPLAR [Suspect]
     Active Substance: PARICALCITOL
     Indication: Chronic kidney disease
     Dosage: FORM STRENGTH: 5 MICROGRAM
     Route: 050
     Dates: start: 20150130, end: 20230711

REACTIONS (4)
  - Uterine cancer [Unknown]
  - Uterine haemorrhage [Not Recovered/Not Resolved]
  - Respiratory arrest [Fatal]
  - Venous occlusion [Unknown]

NARRATIVE: CASE EVENT DATE: 20221201
